FAERS Safety Report 19162507 (Version 1)
Quarter: 2021Q2

REPORT INFORMATION
  Report Type: Spontaneous
  Country: US (occurrence: US)
  Receive Date: 20210420
  Receipt Date: 20210420
  Transmission Date: 20210717
  Serious: Yes (Hospitalization, Other)
  Sender: FDA-Public Use
  Company Number: None

PATIENT
  Age: 33 Year
  Sex: Male

DRUGS (1)
  1. LEGION FORGE [Suspect]
     Active Substance: DIETARY SUPPLEMENT
     Indication: NUTRITIONAL SUPPLEMENTATION
     Dosage: QUALITY: FULL DOSE IN 8 CAPSULES A DAY??FREQUENCY: 15 MIN BEFORE WORKING OUT
     Route: 048

REACTIONS (11)
  - Gun shot wound [None]
  - Memory impairment [None]
  - Suicidal ideation [None]
  - Mood altered [None]
  - Fear [None]
  - Anxiety [None]
  - Depressed mood [None]
  - Paranoia [None]
  - Depression [None]
  - Emotional distress [None]
  - Impaired quality of life [None]

NARRATIVE: CASE EVENT DATE: 20170321
